FAERS Safety Report 10408160 (Version 2)
Quarter: 2014Q3

REPORT INFORMATION
  Report Type: Report from Study
  Country: GB (occurrence: GB)
  Receive Date: 20140826
  Receipt Date: 20140826
  Transmission Date: 20150326
  Serious: Yes (Other)
  Sender: FDA-Public Use
  Company Number: GB-ROCHE-1403323

PATIENT
  Sex: Female

DRUGS (1)
  1. HERCEPTIN [Suspect]
     Active Substance: TRASTUZUMAB
     Indication: PRODUCT USED FOR UNKNOWN INDICATION
     Route: 058

REACTIONS (8)
  - Nail discolouration [Unknown]
  - Paraesthesia [Unknown]
  - Onychoclasis [Unknown]
  - Constipation [Unknown]
  - Hot flush [Unknown]
  - Breast tenderness [Unknown]
  - Fatigue [Unknown]
  - Asthenia [Unknown]
